FAERS Safety Report 10143247 (Version 1)
Quarter: 2014Q2

REPORT INFORMATION
  Report Type: Spontaneous
  Country: FR (occurrence: FR)
  Receive Date: 20140430
  Receipt Date: 20140430
  Transmission Date: 20141212
  Serious: Yes (Death)
  Sender: FDA-Public Use
  Company Number: FR-009507513-1404FRA013270

PATIENT
  Age: 66 Year
  Sex: Female

DRUGS (1)
  1. EMEND [Suspect]
     Indication: VOMITING
     Dosage: UNK
     Route: 048
     Dates: start: 20140210, end: 20140213

REACTIONS (1)
  - Disease progression [Fatal]
